FAERS Safety Report 5132315-6 (Version None)
Quarter: 2006Q4

REPORT INFORMATION
  Report Type: 
  Country: None (occurrence: None)
  Receive Date: 20061019
  Receipt Date: 20061019
  Transmission Date: 20070319
  Serious: Yes (Hospitalization)
  Sender: FDA-Public Use
  Company Number: None

PATIENT
  Age: 69 Year
  Sex: Female
  Weight: 94.8018 kg

DRUGS (1)
  1. SUNITINIB [Suspect]
     Indication: RENAL CANCER METASTATIC
     Dosage: 50 MG DAILY X 28 PO
     Route: 048
     Dates: start: 20060401

REACTIONS (6)
  - BALANCE DISORDER [None]
  - FATIGUE [None]
  - NAUSEA [None]
  - NYSTAGMUS [None]
  - VERTIGO [None]
  - VOMITING [None]
